FAERS Safety Report 9167088 (Version 1)
Quarter: 2013Q1

REPORT INFORMATION
  Report Type: Spontaneous
  Country: US (occurrence: US)
  Receive Date: 20130318
  Receipt Date: 20130318
  Transmission Date: 20140127
  Serious: Yes (Other)
  Sender: FDA-Public Use
  Company Number: US-BIOGENIDEC-2007BI002303

PATIENT
  Age: 48 Year
  Sex: Female
  Weight: 72 kg

DRUGS (4)
  1. AVONEX [Suspect]
     Indication: MULTIPLE SCLEROSIS
     Route: 030
     Dates: start: 20051206, end: 20060611
  2. AVONEX [Suspect]
     Indication: MULTIPLE SCLEROSIS
     Route: 030
     Dates: start: 20070301, end: 20070524
  3. NEURONTIN [Concomitant]
     Indication: MULTIPLE SCLEROSIS
  4. LAMICTAL [Concomitant]
     Indication: MULTIPLE SCLEROSIS

REACTIONS (2)
  - Breast cancer [Recovered/Resolved]
  - Influenza like illness [Recovered/Resolved]
